FAERS Safety Report 9028864 (Version 1)
Quarter: 2013Q1

REPORT INFORMATION
  Report Type: Spontaneous
  Country: BR (occurrence: BR)
  Receive Date: 20130124
  Receipt Date: 20130124
  Transmission Date: 20140127
  Serious: Yes (Death)
  Sender: FDA-Public Use
  Company Number: BR-AMGEN-BRASP2012031305

PATIENT
  Age: 38 Year
  Sex: Female
  Weight: 68 kg

DRUGS (4)
  1. ENBREL [Suspect]
     Indication: RHEUMATOID ARTHRITIS
     Dosage: 50 MG, ONCE WEEKLY
     Route: 058
     Dates: start: 201203
  2. PREDNISONE [Concomitant]
     Dosage: UNK
  3. ENALAPRIL [Concomitant]
     Dosage: UNK
  4. DIURIX                             /00032601/ [Concomitant]
     Dosage: UNK

REACTIONS (2)
  - Death [Fatal]
  - Pyrexia [Not Recovered/Not Resolved]
